FAERS Safety Report 18352316 (Version 5)
Quarter: 2025Q3

REPORT INFORMATION
  Report Type: Spontaneous
  Country: EU (occurrence: EU)
  Receive Date: 20201006
  Receipt Date: 20250814
  Transmission Date: 20251021
  Serious: Yes (Hospitalization, Other)
  Sender: PURDUE
  Company Number: EU-TEVA-2020-IT-1824630

PATIENT
  Age: 43 Year
  Sex: Female

DRUGS (26)
  1. MORPHINE SULFATE [Suspect]
     Active Substance: MORPHINE SULFATE
     Indication: Headache
     Route: 065
  2. MORPHINE SULFATE [Suspect]
     Active Substance: MORPHINE SULFATE
     Route: 065
  3. INDOMETACIN MEGLUMINE [Suspect]
     Active Substance: INDOMETACIN MEGLUMINE
     Indication: Headache
     Route: 065
  4. INDOMETACIN MEGLUMINE [Suspect]
     Active Substance: INDOMETACIN MEGLUMINE
     Route: 065
  5. OXYCODONE AND ACETAMINOPHEN [Suspect]
     Active Substance: ACETAMINOPHEN\OXYCODONE HYDROCHLORIDE
     Indication: Headache
     Route: 065
  6. OXYCODONE AND ACETAMINOPHEN [Suspect]
     Active Substance: ACETAMINOPHEN\OXYCODONE HYDROCHLORIDE
     Route: 065
  7. OXYCODONE AND ACETAMINOPHEN [Suspect]
     Active Substance: ACETAMINOPHEN\OXYCODONE HYDROCHLORIDE
     Route: 065
  8. INDOMETHACIN [Suspect]
     Active Substance: INDOMETHACIN
     Indication: Headache
     Route: 065
  9. INDOMETHACIN [Suspect]
     Active Substance: INDOMETHACIN
     Route: 065
  10. INDOMETHACIN [Suspect]
     Active Substance: INDOMETHACIN
     Route: 065
  11. TOPIRAMATE [Suspect]
     Active Substance: TOPIRAMATE
     Indication: Headache
     Route: 065
  12. ACETAMINOPHEN\CODEINE PHOSPHATE [Suspect]
     Active Substance: ACETAMINOPHEN\CODEINE PHOSPHATE
     Indication: Headache
     Route: 065
  13. ACETAMINOPHEN\CODEINE PHOSPHATE [Suspect]
     Active Substance: ACETAMINOPHEN\CODEINE PHOSPHATE
     Route: 065
  14. FENTANYL [Suspect]
     Active Substance: FENTANYL
     Indication: Headache
     Route: 065
  15. FENTANYL [Suspect]
     Active Substance: FENTANYL
     Route: 065
  16. NOVALGINA [Suspect]
     Active Substance: ACETAMINOPHEN\CAFFEINE
     Indication: Headache
     Route: 065
  17. NOVALGINA [Suspect]
     Active Substance: ACETAMINOPHEN\CAFFEINE
     Route: 065
  18. METAMIZOL [Suspect]
     Active Substance: METAMIZOLE SODIUM
     Indication: Headache
     Route: 065
  19. ACETAMINOPHEN\OXYCODONE HYDROCHLORIDE [Suspect]
     Active Substance: ACETAMINOPHEN\OXYCODONE HYDROCHLORIDE
     Indication: Headache
     Route: 065
  20. ACETAMINOPHEN\OXYCODONE HYDROCHLORIDE [Suspect]
     Active Substance: ACETAMINOPHEN\OXYCODONE HYDROCHLORIDE
     Route: 065
  21. ACETAMINOPHEN\OXYCODONE HYDROCHLORIDE [Suspect]
     Active Substance: ACETAMINOPHEN\OXYCODONE HYDROCHLORIDE
     Route: 065
  22. ACETAMINOPHEN\OXYCODONE HYDROCHLORIDE [Suspect]
     Active Substance: ACETAMINOPHEN\OXYCODONE HYDROCHLORIDE
     Route: 065
  23. METHADONE [Suspect]
     Active Substance: METHADONE HYDROCHLORIDE
     Indication: Headache
     Route: 065
  24. CLOMIPRAMINE [Suspect]
     Active Substance: CLOMIPRAMINE
     Indication: Headache
     Route: 065
  25. LANSOPRAZOLE [Suspect]
     Active Substance: LANSOPRAZOLE
     Indication: Product used for unknown indication
     Route: 065
  26. ACETAMINOPHEN [Suspect]
     Active Substance: ACETAMINOPHEN
     Indication: Headache
     Route: 065

REACTIONS (7)
  - Duodenal ulcer [Unknown]
  - Gastric ulcer [Unknown]
  - Gastric haemorrhage [Unknown]
  - Intentional product misuse [Unknown]
  - Intentional overdose [Unknown]
  - Gastroduodenal ulcer [Unknown]
  - Drug abuse [Recovered/Resolved]
